FAERS Safety Report 9325243 (Version 1)
Quarter: 2013Q2

REPORT INFORMATION
  Report Type: Spontaneous
  Country: PL (occurrence: PL)
  Receive Date: 20130604
  Receipt Date: 20130604
  Transmission Date: 20140414
  Serious: Yes (Other)
  Sender: FDA-Public Use
  Company Number: PL-ROCHE-1231550

PATIENT
  Age: 31 Year
  Sex: Female

DRUGS (4)
  1. RITUXIMAB [Suspect]
     Indication: RHEUMATOID ARTHRITIS
     Dosage: THE PATIENT RECEIVED TWO 1000 MG INTRAVENOUS INFUSIONS SEPARATED BY 2 WEEKS
     Route: 042
  2. METHYLPREDNISOLONE [Concomitant]
     Indication: RHEUMATOID ARTHRITIS
     Route: 065
  3. METHYLPREDNISOLONE [Concomitant]
     Route: 065
  4. METHYLPREDNISOLONE [Concomitant]
     Route: 065

REACTIONS (1)
  - Cutaneous lupus erythematosus [Recovering/Resolving]
